FAERS Safety Report 19004699 (Version 1)
Quarter: 2021Q1

REPORT INFORMATION
  Report Type: Spontaneous
  Country: GB (occurrence: GB)
  Receive Date: 20210312
  Receipt Date: 20210312
  Transmission Date: 20210420
  Serious: Yes (Other)
  Sender: FDA-Public Use
  Company Number: GB-ASTRAZENECA-2021A108372

PATIENT
  Age: 48 Year
  Sex: Male
  Weight: 55 kg

DRUGS (2)
  1. PULMICORT TURBUHALER [Suspect]
     Active Substance: BUDESONIDE
     Indication: ASTHMA
     Dosage: 1
     Route: 055
     Dates: start: 20200606, end: 20200606
  2. QVAR [Suspect]
     Active Substance: BECLOMETHASONE DIPROPIONATE
     Indication: ASTHMA
     Dosage: 1
     Route: 055
     Dates: start: 20200530, end: 20200530

REACTIONS (8)
  - Feeling abnormal [Recovered/Resolved]
  - Heart rate increased [Unknown]
  - Sedation [Recovered/Resolved]
  - Fatigue [Not Recovered/Not Resolved]
  - Shock [Recovered/Resolved]
  - Chronic fatigue syndrome [Unknown]
  - Panic reaction [Unknown]
  - Anxiety [Recovered/Resolved]

NARRATIVE: CASE EVENT DATE: 20200530
